FAERS Safety Report 25099550 (Version 1)
Quarter: 2025Q1

REPORT INFORMATION
  Report Type: Spontaneous
  Country: US (occurrence: None)
  Receive Date: 20250319
  Receipt Date: 20250319
  Transmission Date: 20250409
  Serious: No
  Sender: FDA-CTU
  Company Number: None

PATIENT

DRUGS (1)
  1. RAMELTEON [Suspect]
     Active Substance: RAMELTEON
     Dosage: OTHER QUANTITY : 1 TABLET(S);?FREQUENCY : DAILY;?

REACTIONS (1)
  - Drug ineffective [None]

NARRATIVE: CASE EVENT DATE: 20250318
